FAERS Safety Report 18746757 (Version 1)
Quarter: 2021Q1

REPORT INFORMATION
  Report Type: Report from Study
  Country: BR (occurrence: BR)
  Receive Date: 20210115
  Receipt Date: 20210115
  Transmission Date: 20210419
  Serious: Yes (Disabling, Other)
  Sender: FDA-Public Use
  Company Number: NVSC2020BR264962

PATIENT
  Age: 51 Year
  Sex: Male

DRUGS (3)
  1. XOLAIR [Suspect]
     Active Substance: OMALIZUMAB
     Dosage: UNK
     Route: 065
     Dates: start: 20200420
  2. XOLAIR [Suspect]
     Active Substance: OMALIZUMAB
     Indication: ASTHMA
     Dosage: UNK
     Route: 065
     Dates: start: 20200121
  3. AZITHROMYCIN DIHYDRATE. [Suspect]
     Active Substance: AZITHROMYCIN DIHYDRATE
     Indication: COVID-19
     Dosage: UNK
     Route: 065
     Dates: start: 202007

REACTIONS (16)
  - Blindness [Not Recovered/Not Resolved]
  - Syncope [Unknown]
  - COVID-19 [Unknown]
  - Lung disorder [Unknown]
  - Asthma [Unknown]
  - Cough [Unknown]
  - Asthmatic crisis [Unknown]
  - Sleep disorder [Unknown]
  - Adverse drug reaction [Unknown]
  - Dyspnoea [Unknown]
  - Respiratory disorder [Unknown]
  - Malaise [Not Recovered/Not Resolved]
  - General physical health deterioration [Not Recovered/Not Resolved]
  - Pyrexia [Not Recovered/Not Resolved]
  - Wheezing [Recovering/Resolving]
  - Feeling hot [Not Recovered/Not Resolved]

NARRATIVE: CASE EVENT DATE: 202006
